FAERS Safety Report 9083766 (Version 2)
Quarter: 2013Q1

REPORT INFORMATION
  Report Type: Spontaneous
  Country: PE (occurrence: PE)
  Receive Date: 20130218
  Receipt Date: 20130225
  Transmission Date: 20140127
  Serious: Yes (Death, Hospitalization)
  Sender: FDA-Public Use
  Company Number: PHHY2013PE015223

PATIENT
  Age: 38 Year
  Sex: Female

DRUGS (2)
  1. GLIVEC [Suspect]
     Indication: CHRONIC MYELOID LEUKAEMIA
     Dosage: 400 MG
  2. GLIVEC [Suspect]
     Dosage: 600 MG
     Route: 048

REACTIONS (2)
  - Infection [Fatal]
  - Leukocytosis [Unknown]
